FAERS Safety Report 6012572-4 (Version None)
Quarter: 2008Q4

REPORT INFORMATION
  Report Type: 
  Country: None (occurrence: None)
  Receive Date: 20081218
  Receipt Date: 20070223
  Transmission Date: 20090506
  Serious: Yes (Death)
  Sender: FDA-Public Use
  Company Number: DE-GENENTECH-237495

PATIENT
  Sex: Male
  Weight: 87 kg

DRUGS (7)
  1. AVASTIN [Suspect]
     Indication: COLORECTAL CANCER METASTATIC
     Dosage: 435 MG, Q2W
     Route: 042
     Dates: start: 20070122, end: 20070218
  2. OXALIPLATIN [Suspect]
     Indication: COLORECTAL CANCER METASTATIC
     Dosage: 178 MG, UNK
     Route: 042
     Dates: start: 20070122, end: 20070218
  3. FLUOROURACIL [Suspect]
     Indication: COLORECTAL CANCER METASTATIC
     Dosage: 945 MG, UNK
     Route: 042
     Dates: start: 20070122, end: 20070218
  4. FLUOROURACIL [Suspect]
     Dosage: 630 MG, UNK
     Route: 040
     Dates: start: 20070122, end: 20070218
  5. CALCIUM FOLINATE [Suspect]
     Indication: COLORECTAL CANCER METASTATIC
     Dosage: 420 MG, UNK
     Route: 042
     Dates: start: 20070122, end: 20070218
  6. LOPERAMIDE HCL [Concomitant]
     Indication: DRUG USE FOR UNKNOWN INDICATION
     Dates: start: 20070122, end: 20070218
  7. POTASSIUM CHLORIDE [Concomitant]
     Indication: DRUG USE FOR UNKNOWN INDICATION

REACTIONS (1)
  - DEATH [None]
